FAERS Safety Report 9162704 (Version 1)
Quarter: 2013Q1

REPORT INFORMATION
  Report Type: Spontaneous
  Country: US (occurrence: US)
  Receive Date: 20130314
  Receipt Date: 20130314
  Transmission Date: 20140127
  Serious: Yes (Other)
  Sender: FDA-Public Use
  Company Number: US-BAYER-2013-030171

PATIENT
  Age: 24 Year
  Sex: Female
  Weight: 54.42 kg

DRUGS (2)
  1. ALEVE CAPLET/TABLET,MIDOL EXTENDED RELIEF CAPLET [Suspect]
     Indication: PYREXIA
     Dosage: 1 DF, UNK
     Route: 048
     Dates: start: 20130306
  2. ALKA-SELTZER PLUS NIGHT COLD MEDICINE [Suspect]
     Indication: PYREXIA
     Dosage: 2 DF, UNK
     Route: 048
     Dates: start: 20130306

REACTIONS (5)
  - Respiratory distress [None]
  - Dyspnoea [None]
  - Chest pain [Not Recovered/Not Resolved]
  - Abdominal pain upper [Not Recovered/Not Resolved]
  - Vomiting [Recovered/Resolved]
